FAERS Safety Report 16796914 (Version 13)
Quarter: 2020Q4

REPORT INFORMATION
  Report Type: Report from Study
  Country: SA (occurrence: SA)
  Receive Date: 20190911
  Receipt Date: 20201031
  Transmission Date: 20210113
  Serious: Yes (Hospitalization, Other)
  Sender: FDA-Public Use
  Company Number: SA-CELLTRION INC.-2019SA024765

PATIENT

DRUGS (7)
  1. MESALAZINE [Concomitant]
     Active Substance: MESALAMINE
     Indication: COLITIS ULCERATIVE
     Dosage: 3 GRAM, QD (1 IN 1 D)
     Route: 048
     Dates: start: 20190108
  2. REMSIMA [Suspect]
     Active Substance: INFLIXIMAB
     Dosage: 1030 MG AT WEEKS 0, 2, 6, AND EVERY 8 WEEKS
     Route: 041
     Dates: start: 20190624, end: 20190624
  3. IMURAN [Concomitant]
     Active Substance: AZATHIOPRINE
     Dosage: 100 MG
  4. REMSIMA [Suspect]
     Active Substance: INFLIXIMAB
     Indication: COLITIS ULCERATIVE
     Dosage: UNK
     Dates: start: 201901
  5. DIPHENHYDRAMINE. [Concomitant]
     Active Substance: DIPHENHYDRAMINE
     Indication: PREMEDICATION
     Dosage: 50 MG, 1 IN 1 D
     Route: 042
     Dates: start: 20190424, end: 20190424
  6. AZATHIOPRINE. [Concomitant]
     Active Substance: AZATHIOPRINE
     Indication: COLITIS ULCERATIVE
     Dosage: 100 MILLIGRAM, QD (1 IN 1 D)
     Route: 048
     Dates: start: 20190108
  7. ENOXAPARINE [Concomitant]
     Active Substance: ENOXAPARIN
     Indication: PROPHYLAXIS
     Dosage: 40 MG (40 MG, 1 IN 24 HR)
     Route: 058
     Dates: start: 20190729, end: 20190816

REACTIONS (8)
  - Loss of personal independence in daily activities [Recovered/Resolved]
  - Disease recurrence [Recovered/Resolved]
  - Product dose omission issue [Unknown]
  - Intervertebral discitis [Recovered/Resolved]
  - Overdose [Unknown]
  - Brucellosis [Recovered/Resolved]
  - Back pain [Recovered/Resolved]
  - Psoas abscess [Recovered/Resolved]

NARRATIVE: CASE EVENT DATE: 20190727
